FAERS Safety Report 25225062 (Version 1)
Quarter: 2025Q2

REPORT INFORMATION
  Report Type: Spontaneous
  Country: GB (occurrence: GB)
  Receive Date: 20250422
  Receipt Date: 20250422
  Transmission Date: 20250717
  Serious: Yes (Disabling, Other)
  Sender: ASTELLAS
  Company Number: GB-MHRA-WEBRADR-202503142236063870-CSMBK

PATIENT
  Age: 50 Year
  Sex: Female
  Weight: 83 kg

DRUGS (1)
  1. SOLIFENACIN [Suspect]
     Active Substance: SOLIFENACIN
     Indication: Hypertonic bladder
     Route: 048
     Dates: start: 20230727

REACTIONS (1)
  - Memory impairment [Recovering/Resolving]

NARRATIVE: CASE EVENT DATE: 20241202
